FAERS Safety Report 10507255 (Version 1)
Quarter: 2014Q4

REPORT INFORMATION
  Report Type: Spontaneous
  Country: US (occurrence: None)
  Receive Date: 20141008
  Receipt Date: 20141008
  Transmission Date: 20150528
  Serious: Yes (Other)
  Sender: FDA-Public Use
  Company Number: None

PATIENT
  Age: 66 Year
  Sex: Male
  Weight: 107.96 kg

DRUGS (1)
  1. DULOXETINE 30MG [Suspect]
     Active Substance: DULOXETINE
     Indication: NEURALGIA
     Dosage: 1, ONCE DAILY, TAKEN BY MOUTH
     Route: 048
     Dates: start: 20140203, end: 20140424

REACTIONS (2)
  - Drug effect decreased [None]
  - Mental impairment [None]

NARRATIVE: CASE EVENT DATE: 20140315
